FAERS Safety Report 8621482-5 (Version None)
Quarter: 2012Q3

REPORT INFORMATION
  Report Type: 
  Country: None (occurrence: None)
  Receive Date: 20120824
  Receipt Date: 20120815
  Transmission Date: 20120928
  Serious: Yes (Other)
  Sender: FDA-Public Use
  Company Number: US-ASTRAZENECA-2012SE02774

PATIENT
  Age: 52 Year
  Sex: Female
  Weight: 95.3 kg

DRUGS (9)
  1. ADVIL [Concomitant]
     Dates: start: 20110610
  2. TRIAMCINOLONE ACETONIDE [Concomitant]
     Dates: start: 20110713
  3. PRILOSEC [Suspect]
     Route: 048
  4. HYDROXYZINE HCL [Concomitant]
     Dates: start: 20110713
  5. CLOBETASOL PROPIONATE [Concomitant]
     Dosage: 0.05 %  APPLY AND GENTLY MASSAGE INTO AFFECTED AREAS TWICE DAILY
     Dates: start: 20100723
  6. CLOBETASOL PROPIONATE [Concomitant]
     Dosage: 0.05 % CREAM APPLY SPARINGLY TO AFFECTED AREAS TWICE DAILY
     Dates: start: 20120123
  7. VITAMIN D [Concomitant]
     Dosage: 5000 UNIT, TAKE 1 CAPSULE DAILY
     Dates: start: 20110606
  8. NEXIUM [Suspect]
     Route: 048
     Dates: start: 20080828
  9. GLUCOSAMINE MSM COMPLEX [Concomitant]
     Dates: start: 20080828

REACTIONS (21)
  - HYPOTHYROIDISM [None]
  - HEPATITIS [None]
  - DEPRESSION [None]
  - ADVERSE DRUG REACTION [None]
  - SALIVARY HYPERSECRETION [None]
  - HYPERLIPIDAEMIA [None]
  - NASAL POLYPS [None]
  - CHRONIC SINUSITIS [None]
  - LIPOMA [None]
  - HYPOAESTHESIA [None]
  - ASPARTATE AMINOTRANSFERASE INCREASED [None]
  - MULTIPLE ALLERGIES [None]
  - CELLULITIS [None]
  - BLOOD ALKALINE PHOSPHATASE INCREASED [None]
  - URTICARIA [None]
  - GASTROOESOPHAGEAL REFLUX DISEASE [None]
  - ALANINE AMINOTRANSFERASE INCREASED [None]
  - CONSTIPATION [None]
  - DERMATITIS [None]
  - DRUG DOSE OMISSION [None]
  - DRUG INEFFECTIVE [None]
